FAERS Safety Report 6104981-X (Version None)
Quarter: 2009Q1

REPORT INFORMATION
  Report Type: 
  Country: None (occurrence: None)
  Receive Date: 20090306
  Receipt Date: 20090303
  Transmission Date: 20090719
  Serious: Yes (Other)
  Sender: FDA-Public Use
  Company Number: FR-ASTRAZENECA-2009CG00450

PATIENT
  Age: 60 Year
  Sex: Male

DRUGS (2)
  1. SYMBICORT [Suspect]
     Indication: ASTHMA
     Dosage: 160/4.5 UG ONE INHALATION TWICE DAILY
     Route: 055
     Dates: start: 19990101
  2. NASAL CORTICOSTEROID [Concomitant]
     Indication: ASTHMA
     Route: 045

REACTIONS (1)
  - OSTEONECROSIS [None]
